FAERS Safety Report 25562154 (Version 1)
Quarter: 2025Q3

REPORT INFORMATION
  Report Type: Spontaneous
  Country: US (occurrence: US)
  Receive Date: 20250716
  Receipt Date: 20250716
  Transmission Date: 20251020
  Serious: Yes (Other)
  Sender: NOVO NORDISK
  Company Number: US-NOVOPROD-1359544

PATIENT
  Sex: Female

DRUGS (1)
  1. OZEMPIC [Suspect]
     Active Substance: SEMAGLUTIDE
     Indication: Type 2 diabetes mellitus
     Route: 058
     Dates: start: 202407

REACTIONS (7)
  - Renal impairment [Unknown]
  - Pollakiuria [Unknown]
  - Back pain [Unknown]
  - Chromaturia [Unknown]
  - Heart rate decreased [Unknown]
  - Polydipsia [Unknown]
  - Dehydration [Unknown]

NARRATIVE: CASE EVENT DATE: 20241001
